FAERS Safety Report 7908343 (Version 13)
Quarter: 2014Q4

REPORT INFORMATION
  Report Type: Report from Study
  Country: CA (occurrence: CA)
  Receive Date: 20110421
  Receipt Date: 20141219
  Transmission Date: 20150529
  Serious: Yes (Hospitalization, Other)
  Sender: FDA-Public Use
  Company Number: CA-ROCHE-757098

PATIENT
  Age: 28 Year
  Sex: Female
  Weight: 71 kg

DRUGS (11)
  1. HYDROMORPH CONTIN [Concomitant]
     Active Substance: HYDROMORPHONE
  2. DILAUDID [Concomitant]
     Active Substance: HYDROMORPHONE HYDROCHLORIDE
  3. DICLECTIN [Concomitant]
     Active Substance: DOXYLAMINE\PYRIDOXINE
  4. TRAZODONE [Concomitant]
     Active Substance: TRAZODONE HYDROCHLORIDE
     Dosage: TRAZADONE
     Route: 065
  5. ATIVAN [Concomitant]
     Active Substance: LORAZEPAM
     Dosage: PRN
     Route: 065
  6. METHOTREXATE [Concomitant]
     Active Substance: METHOTREXATE
  7. ACTEMRA [Suspect]
     Active Substance: TOCILIZUMAB
     Indication: RHEUMATOID ARTHRITIS
     Route: 042
  8. AXERT [Concomitant]
     Active Substance: ALMOTRIPTAN MALATE
     Indication: MIGRAINE
  9. ACTEMRA [Suspect]
     Active Substance: TOCILIZUMAB
     Route: 042
  10. ACTEMRA [Suspect]
     Active Substance: TOCILIZUMAB
     Route: 042
  11. PREDNISONE. [Concomitant]
     Active Substance: PREDNISONE
     Indication: RHEUMATOID ARTHRITIS
     Route: 048

REACTIONS (15)
  - Joint injury [Recovered/Resolved]
  - Drug ineffective [Unknown]
  - Hip fracture [Unknown]
  - Sunburn [Recovered/Resolved]
  - Migraine [Recovered/Resolved]
  - Localised infection [Unknown]
  - Therapeutic response decreased [Not Recovered/Not Resolved]
  - Fall [Unknown]
  - Post procedural complication [Recovered/Resolved]
  - Meniscus injury [Not Recovered/Not Resolved]
  - Femur fracture [Recovered/Resolved]
  - Rash [Unknown]
  - Weight increased [Not Recovered/Not Resolved]
  - Bronchitis [Not Recovered/Not Resolved]
  - Hand fracture [Unknown]

NARRATIVE: CASE EVENT DATE: 20100827
